FAERS Safety Report 21531330 (Version 1)
Quarter: 2022Q4

REPORT INFORMATION
  Report Type: Spontaneous
  Country: US (occurrence: None)
  Receive Date: 20221028
  Receipt Date: 20221028
  Transmission Date: 20230113
  Serious: Yes (Hospitalization)
  Sender: FDA-Public Use
  Company Number: None

PATIENT
  Sex: Female
  Weight: 64.41 kg

DRUGS (1)
  1. CAPECITABINE [Suspect]
     Active Substance: CAPECITABINE
     Indication: Breast cancer female
     Dosage: OTHER QUANTITY : 2 TABS;?FREQUENCY : EVERY 12 HOURS;?

REACTIONS (7)
  - White blood cell count decreased [None]
  - Stomatitis [None]
  - Nausea [None]
  - Vomiting [None]
  - Diarrhoea [None]
  - Pain in extremity [None]
  - Skin exfoliation [None]
